FAERS Safety Report 9860946 (Version 1)
Quarter: 2014Q1

REPORT INFORMATION
  Report Type: Spontaneous
  Country: None (occurrence: US)
  Receive Date: 20140202
  Receipt Date: 20140202
  Transmission Date: 20141002
  Serious: No
  Sender: FDA-Public Use
  Company Number: US-ALLERGAN-1302805US

PATIENT
  Sex: Female

DRUGS (2)
  1. BOTOX COSMETIC [Suspect]
     Indication: SKIN WRINKLING
     Dosage: 25 UNITS, SINGLE
     Route: 030
  2. BOTOX COSMETIC [Suspect]
     Indication: SKIN WRINKLING

REACTIONS (8)
  - Impaired work ability [Unknown]
  - Impaired driving ability [Unknown]
  - Visual impairment [Unknown]
  - Skin tightness [Unknown]
  - Eyelid ptosis [Unknown]
  - Eyelid ptosis [Unknown]
  - Eyelid ptosis [Unknown]
  - Headache [Unknown]
